FAERS Safety Report 8217802-6 (Version None)
Quarter: 2012Q1

REPORT INFORMATION
  Report Type: 
  Country: None (occurrence: None)
  Receive Date: 20120319
  Receipt Date: 20120307
  Transmission Date: 20120608
  Serious: Yes (Other)
  Sender: FDA-Public Use
  Company Number: CA-JNJFOC-20120306021

PATIENT
  Sex: Female

DRUGS (1)
  1. REMICADE [Suspect]
     Indication: HIDRADENITIS
     Dosage: 0, 2 AND 6 WEEKS
     Route: 042

REACTIONS (3)
  - INFECTION [None]
  - LUPUS-LIKE SYNDROME [None]
  - ANTINUCLEAR ANTIBODY POSITIVE [None]
